FAERS Safety Report 8817045 (Version 1)
Quarter: 2012Q4

REPORT INFORMATION
  Report Type: Spontaneous
  Country: US (occurrence: None)
  Receive Date: 20121003
  Receipt Date: 20121003
  Transmission Date: 20130627
  Serious: Yes (Hospitalization)
  Sender: FDA-Public Use
  Company Number: None

PATIENT
  Age: 68 Year
  Sex: Male
  Weight: 76.4 kg

DRUGS (2)
  1. MORPHINE [Suspect]
     Dosage: mg;tid;po
     Route: 048
     Dates: start: 20120829, end: 20120831
  2. OXYCODONE [Suspect]
     Route: 048
     Dates: start: 20120629, end: 20120831

REACTIONS (2)
  - Confusional state [None]
  - Syncope [None]
